FAERS Safety Report 4333183-2 (Version None)
Quarter: 2004Q2

REPORT INFORMATION
  Report Type: 
  Country: None (occurrence: None)
  Receive Date: 20040402
  Receipt Date: 20040402
  Transmission Date: 20050107
  Serious: Yes (Hospitalization)
  Sender: FDA-Public Use
  Company Number: None

PATIENT
  Age: 73 Year
  Sex: Female
  Weight: 63 kg

DRUGS (2)
  1. CARBOPLATIN [Suspect]
  2. TAXOTERE [Suspect]

REACTIONS (8)
  - DYSPNOEA [None]
  - FIBROSIS [None]
  - IMPAIRED HEALING [None]
  - LUNG DISORDER [None]
  - LUNG INFILTRATION [None]
  - PLEURAL EFFUSION [None]
  - PNEUMOTHORAX [None]
  - RESPIRATORY FAILURE [None]
